FAERS Safety Report 11041837 (Version 2)
Quarter: 2015Q2

REPORT INFORMATION
  Report Type: Spontaneous
  Country: US (occurrence: US)
  Receive Date: 20150416
  Receipt Date: 20150525
  Transmission Date: 20150821
  Serious: Yes (Other)
  Sender: FDA-Public Use
  Company Number: US-JNJFOC-20130210363

PATIENT
  Age: 83 Year
  Sex: Female
  Weight: 47.63 kg

DRUGS (6)
  1. AMLODIPINE [Concomitant]
     Active Substance: AMLODIPINE BESYLATE
     Indication: BLOOD PRESSURE
     Dosage: AT NIGHT, 1/2 OF 2.5 MG
     Route: 065
  2. VITAMINS NOS [Concomitant]
     Active Substance: VITAMINS
     Route: 065
  3. ASPIRIN. [Suspect]
     Active Substance: ASPIRIN
     Indication: THROMBOSIS PROPHYLAXIS
     Dosage: AT NIGHT
     Route: 048
     Dates: end: 20130215
  4. XARELTO [Suspect]
     Active Substance: RIVAROXABAN
     Indication: ATRIAL FIBRILLATION
     Dosage: PLACE WHERE THE DRUG PURCHASED WAS UNKNOWN MAIL ORDER PHARMACY
     Route: 048
     Dates: start: 201301
  5. LIPITOR [Concomitant]
     Active Substance: ATORVASTATIN CALCIUM
     Indication: BLOOD CHOLESTEROL
     Route: 048
  6. XARELTO [Suspect]
     Active Substance: RIVAROXABAN
     Indication: CEREBROVASCULAR ACCIDENT PROPHYLAXIS
     Dosage: PLACE WHERE THE DRUG PURCHASED WAS UNKNOWN MAIL ORDER PHARMACY
     Route: 048
     Dates: start: 201301

REACTIONS (3)
  - Haemoptysis [Recovering/Resolving]
  - Throat irritation [Recovering/Resolving]
  - Mouth haemorrhage [Recovering/Resolving]

NARRATIVE: CASE EVENT DATE: 201301
